FAERS Safety Report 5397575-5 (Version None)
Quarter: 2007Q3

REPORT INFORMATION
  Report Type: 
  Country: None (occurrence: None)
  Receive Date: 20070726
  Receipt Date: 20070717
  Transmission Date: 20080115
  Serious: Yes (Hospitalization)
  Sender: FDA-Public Use
  Company Number: CA-SANOFI-SYNTHELABO-D01200704775

PATIENT
  Sex: Male
  Weight: 78.2 kg

DRUGS (11)
  1. FLOVENT [Concomitant]
     Dosage: 2 DF
     Route: 055
     Dates: start: 19990101
  2. CRESTOR [Concomitant]
     Dosage: 10 MG
     Route: 048
     Dates: start: 20070124
  3. ZANTAC 150 [Concomitant]
     Dosage: 150 MG
     Route: 048
     Dates: start: 19990101
  4. ASPIRIN [Concomitant]
     Dosage: 80 MG
     Route: 048
     Dates: start: 20010101
  5. HYDROCHLOROTHIAZIDE [Concomitant]
     Dosage: 25 MG
     Route: 048
     Dates: start: 20020220
  6. TENORMIN [Concomitant]
     Dosage: 50 MG
     Route: 048
     Dates: start: 20020128
  7. SERAX [Concomitant]
     Dosage: 15 MG
     Route: 048
     Dates: start: 19990101
  8. CLOPIDOGREL [Concomitant]
     Indication: PERIPHERAL ARTERIAL OCCLUSIVE DISEASE
     Route: 048
     Dates: start: 20070514, end: 20070625
  9. IMDUR [Concomitant]
     Dosage: 30 MG
     Route: 048
     Dates: start: 20040120
  10. COMBIVENT [Concomitant]
     Dosage: 2 PUFFS
     Route: 055
     Dates: start: 19990101
  11. HMR1766 [Suspect]
     Indication: PERIPHERAL ARTERIAL OCCLUSIVE DISEASE
     Route: 048
     Dates: start: 20070614, end: 20070627

REACTIONS (2)
  - HYPERSENSITIVITY [None]
  - OEDEMA PERIPHERAL [None]
